FAERS Safety Report 22173376 (Version 1)
Quarter: 2023Q2

REPORT INFORMATION
  Report Type: Spontaneous
  Country: JP (occurrence: JP)
  Receive Date: 20230404
  Receipt Date: 20230404
  Transmission Date: 20230722
  Serious: Yes (Hospitalization)
  Sender: FDA-Public Use
  Company Number: JP-TEVA-2023-JP-2873404

PATIENT
  Age: 24 Year
  Sex: Male

DRUGS (5)
  1. PREDNISOLONE [Suspect]
     Active Substance: PREDNISOLONE
     Indication: Glomerulonephritis minimal lesion
     Dosage: 4 MILLIGRAM DAILY; TAPERED DOSE INITIAL DOSE NOT STATED, ONCE A DAY
     Route: 065
  2. PREDNISOLONE [Suspect]
     Active Substance: PREDNISOLONE
     Dosage: 15 MILLIGRAM DAILY; ONCE A DAY
     Route: 065
  3. RITUXIMAB [Suspect]
     Active Substance: RITUXIMAB
     Indication: Nephrotic syndrome
     Dosage: 500MG EVERY 6 MONTHS
     Route: 065
  4. BNT162b2 SARS-CoV-2 vaccine [Concomitant]
     Indication: COVID-19 immunisation
     Dosage: FIRST DOSE
     Route: 065
     Dates: start: 202107
  5. BNT162b2 SARS-CoV-2 vaccine [Concomitant]
     Dosage: SECOND DOSE
     Route: 065
     Dates: start: 202108

REACTIONS (6)
  - COVID-19 [Recovering/Resolving]
  - Staphylococcal infection [Recovering/Resolving]
  - Pneumonia staphylococcal [Recovering/Resolving]
  - Pseudomonas infection [Recovering/Resolving]
  - Pneumonia [Recovering/Resolving]
  - COVID-19 [Recovering/Resolving]

NARRATIVE: CASE EVENT DATE: 20210101
